FAERS Safety Report 7053318 (Version 1)
Quarter: 2020Q3

REPORT INFORMATION
  Report Type: Report from Study
  Country: DE (occurrence: DE)
  Receive Date: 20090717
  Receipt Date: 20090717
  Transmission Date: 20201104
  Serious: Yes (Death, Other)
  Sender: FDA-Public Use
  Company Number: DE-ROCHE-641954

PATIENT

DRUGS (10)
  1. CEFTRIAXONE. [Suspect]
     Active Substance: CEFTRIAXONE
     Indication: ANTIBIOTIC PROPHYLAXIS
     Route: 065
  2. METRONIDAZOLE. [Suspect]
     Active Substance: METRONIDAZOLE
     Indication: ANTIBIOTIC PROPHYLAXIS
     Route: 065
  3. MYCOPHENOLATE MOFETIL. [Suspect]
     Active Substance: MYCOPHENOLATE MOFETIL
     Dosage: 2?3 GRAM DAILY; OTHER INDICATION: PROPHYLAXIS, KIDNEY TRANSPLANT REJECTION
     Route: 065
  4. TACROLIMUS. [Suspect]
     Active Substance: TACROLIMUS
     Dosage: TROUGH LEVELS: 10?15 NG/ML; OTHER INDICATION: PROPHYLAXIS, KIDNEY TRANSPLANT REJECTION
     Route: 065
  5. FLUCONAZOLE. [Concomitant]
     Active Substance: FLUCONAZOLE
     Indication: ANTIFUNGAL PROPHYLAXIS
  6. GANCICLOVIR. [Suspect]
     Active Substance: GANCICLOVIR
     Indication: ANTIVIRAL PROPHYLAXIS
     Route: 065
  7. TRASYLOL [Concomitant]
     Active Substance: APROTININ
  8. ACETYLCYSTEINE. [Concomitant]
     Active Substance: ACETYLCYSTEINE
  9. HEPARIN SODIUM. [Suspect]
     Active Substance: HEPARIN SODIUM
     Indication: THROMBOSIS PROPHYLAXIS
     Dosage: REPORTED AS LIQUEMNIN AND LOW?MOLECULAR?WEIGHT?HEPARIN (LMWH)
     Route: 065
  10. PREDNISOLONE. [Suspect]
     Active Substance: PREDNISOLONE
     Dosage: OTHER INDICATION: PROPHYLAXIS, KIDNEY TRANSPLANT REJECTION
     Route: 065

REACTIONS (9)
  - Graft loss [Unknown]
  - Pancreatitis [Unknown]
  - Haemorrhage [Unknown]
  - Infection [Fatal]
  - Heparin-induced thrombocytopenia [Unknown]
  - Transplant rejection [Unknown]
  - Death [Fatal]
  - Cardiovascular disorder [Fatal]
  - Thrombosis [Unknown]
